FAERS Safety Report 5196284-5 (Version None)
Quarter: 2007Q1

REPORT INFORMATION
  Report Type: 
  Country: None (occurrence: None)
  Receive Date: 20070102
  Receipt Date: 20061221
  Transmission Date: 20070707
  Serious: Yes (Other)
  Sender: FDA-Public Use
  Company Number: GB-PFIZER INC-2006152568

PATIENT
  Age: 52 Year
  Sex: Female
  Weight: 57 kg

DRUGS (3)
  1. LYRICA [Suspect]
     Indication: FACIAL PAIN
     Route: 048
  2. LYRICA [Suspect]
     Indication: FACIAL NEURALGIA
  3. AMITRIPTYLINE HCL [Concomitant]
     Indication: FACIAL NEURALGIA
     Route: 048

REACTIONS (2)
  - SENSORY DISTURBANCE [None]
  - SKIN DISCOLOURATION [None]
